FAERS Safety Report 7564077-7 (Version None)
Quarter: 2011Q2

REPORT INFORMATION
  Report Type: 
  Country: None (occurrence: None)
  Receive Date: 20110622
  Receipt Date: 20110614
  Transmission Date: 20111010
  Serious: Yes (Hospitalization)
  Sender: FDA-Public Use
  Company Number: US-US-EMD SERONO, INC.-7065471

PATIENT
  Sex: Male
  Weight: 98 kg

DRUGS (2)
  1. BACLOFEN [Concomitant]
     Indication: MULTIPLE SCLEROSIS
  2. REBIF [Suspect]
     Indication: MULTIPLE SCLEROSIS
     Route: 058
     Dates: start: 20040818, end: 20110501

REACTIONS (4)
  - UHTHOFF'S PHENOMENON [None]
  - PNEUMONIA [None]
  - DEVICE DISLOCATION [None]
  - MULTIPLE SCLEROSIS RELAPSE [None]
